FAERS Safety Report 10305599 (Version 1)
Quarter: 2014Q3

REPORT INFORMATION
  Report Type: Spontaneous
  Country: US (occurrence: None)
  Receive Date: 20140714
  Receipt Date: 20140714
  Transmission Date: 20150326
  Serious: Yes (Hospitalization)
  Sender: FDA-Public Use
  Company Number: None

PATIENT
  Age: 89 Year
  Sex: Female
  Weight: 60 kg

DRUGS (7)
  1. LIPITOR [Concomitant]
     Active Substance: ATORVASTATIN CALCIUM
  2. VITAMIN D [Concomitant]
     Active Substance: CHOLECALCIFEROL
  3. ELIQUIS [Suspect]
     Active Substance: APIXABAN
     Indication: ATRIAL FIBRILLATION
     Route: 048
     Dates: start: 20140505, end: 20140710
  4. LEVOTHYROXINE [Concomitant]
     Active Substance: LEVOTHYROXINE
  5. LISINOPRIL. [Concomitant]
     Active Substance: LISINOPRIL
  6. KCL [Concomitant]
     Active Substance: POTASSIUM CHLORIDE
  7. DILTIAZEMXR [Concomitant]

REACTIONS (3)
  - Abdominal pain [None]
  - Diverticulum intestinal haemorrhagic [None]
  - Rectal haemorrhage [None]

NARRATIVE: CASE EVENT DATE: 20140710
